FAERS Safety Report 18043328 (Version 1)
Quarter: 2020Q3

REPORT INFORMATION
  Report Type: Report from Study
  Country: IL (occurrence: IL)
  Receive Date: 20200720
  Receipt Date: 20200720
  Transmission Date: 20201103
  Serious: Yes (Death, Hospitalization, Other)
  Sender: FDA-Public Use
  Company Number: IL-ASTELLAS-2017US023169

PATIENT
  Age: 69 Year
  Sex: Male

DRUGS (1)
  1. ASP2215 [Suspect]
     Active Substance: GILTERITINIB
     Indication: ACUTE MYELOID LEUKAEMIA
     Route: 048
     Dates: start: 20170509, end: 20170618

REACTIONS (3)
  - Otitis externa [Not Recovered/Not Resolved]
  - Febrile neutropenia [Recovered/Resolved]
  - Cellulitis [Fatal]

NARRATIVE: CASE EVENT DATE: 20170608
